FAERS Safety Report 6774154-6 (Version None)
Quarter: 2010Q2

REPORT INFORMATION
  Report Type: 
  Country: None (occurrence: None)
  Receive Date: 20100617
  Receipt Date: 20100608
  Transmission Date: 20101027
  Serious: Yes (Other)
  Sender: FDA-Public Use
  Company Number: US-NOVOPROD-309817

PATIENT
  Age: 47 Year
  Sex: Male
  Weight: 86.168 kg

DRUGS (3)
  1. LEVEMIR [Suspect]
     Indication: DIABETES MELLITUS
     Dosage: 42 U, QD AT BEDTIME
     Route: 058
     Dates: start: 20100501
  2. NOVOLOG [Suspect]
     Indication: DIABETES MELLITUS
     Dosage: UNK
     Route: 058
     Dates: start: 20100501, end: 20100601
  3. NOVOLIN R [Suspect]
     Indication: DIABETES MELLITUS
     Dosage: UNK
     Route: 058
     Dates: start: 20100601

REACTIONS (5)
  - BLOOD GLUCOSE DECREASED [None]
  - BLOOD GLUCOSE FLUCTUATION [None]
  - CONVULSION [None]
  - INCORRECT DOSE ADMINISTERED [None]
  - LACERATION [None]
